FAERS Safety Report 18461440 (Version 1)
Quarter: 2020Q4

REPORT INFORMATION
  Report Type: Spontaneous
  Country: US (occurrence: US)
  Receive Date: 20201104
  Receipt Date: 20201104
  Transmission Date: 20210114
  Serious: No
  Sender: FDA-Public Use
  Company Number: US-BAYER-2020-236987

PATIENT

DRUGS (1)
  1. MIRALAX [Suspect]
     Active Substance: POLYETHYLENE GLYCOL 3350
     Indication: IRRITABLE BOWEL SYNDROME
     Dosage: UNK
     Dates: start: 202010

REACTIONS (3)
  - Drug ineffective for unapproved indication [Unknown]
  - Constipation [None]
  - Off label use [Unknown]

NARRATIVE: CASE EVENT DATE: 202010
